FAERS Safety Report 4686116-3 (Version None)
Quarter: 2005Q2

REPORT INFORMATION
  Report Type: 
  Country: None (occurrence: None)
  Receive Date: 20050606
  Receipt Date: 20050526
  Transmission Date: 20051028
  Serious: Yes (Hospitalization)
  Sender: FDA-Public Use
  Company Number: 2005-128691-NL

PATIENT
  Age: 67 Year
  Sex: Male

DRUGS (4)
  1. VECURONIUM BROMIDE [Suspect]
     Indication: LIFE SUPPORT
  2. HALOTHANE [Concomitant]
  3. HELIUM [Concomitant]
  4. STEROIDS [Suspect]

REACTIONS (1)
  - MYOPATHY [None]
